FAERS Safety Report 12328596 (Version 1)
Quarter: 2016Q2

REPORT INFORMATION
  Report Type: Spontaneous
  Country: US (occurrence: US)
  Receive Date: 20160503
  Receipt Date: 20160503
  Transmission Date: 20160815
  Serious: No
  Sender: FDA-Public Use
  Company Number: US-BEH-2015049512

PATIENT
  Age: 69 Year
  Sex: Female
  Weight: 69 kg

DRUGS (24)
  1. DIPHENHYDRAMINE. [Concomitant]
     Active Substance: DIPHENHYDRAMINE
  2. EPIPEN [Concomitant]
     Active Substance: EPINEPHRINE
  3. ASPIRIN. [Concomitant]
     Active Substance: ASPIRIN
  4. LIDOCAINE/PRILOCAINE [Concomitant]
  5. LABETALOL [Concomitant]
     Active Substance: LABETALOL\LABETALOL HYDROCHLORIDE
  6. ATACAND [Concomitant]
     Active Substance: CANDESARTAN CILEXETIL
  7. MOTRIN [Concomitant]
     Active Substance: IBUPROFEN
  8. PROBIOTIC [Concomitant]
     Active Substance: PROBIOTICS NOS
  9. VITAMIN D3 [Concomitant]
     Active Substance: CHOLECALCIFEROL
  10. GABAPENTIN. [Concomitant]
     Active Substance: GABAPENTIN
  11. NEXIUM [Concomitant]
     Active Substance: ESOMEPRAZOLE MAGNESIUM
  12. TYLENOL [Concomitant]
     Active Substance: ACETAMINOPHEN
  13. MULTIVITAMIN [Concomitant]
     Active Substance: VITAMINS
  14. BETAMETHASONE. [Concomitant]
     Active Substance: BETAMETHASONE
  15. COCONUT OIL [Concomitant]
     Active Substance: COCONUT OIL
  16. C-1000 MG W/ROSE HIPS [Concomitant]
  17. LEVOTHYROXINE. [Concomitant]
     Active Substance: LEVOTHYROXINE
  18. ZETIA [Concomitant]
     Active Substance: EZETIMIBE
  19. HIZENTRA [Suspect]
     Active Substance: HUMAN IMMUNOGLOBULIN G
     Indication: IMMUNODEFICIENCY COMMON VARIABLE
     Dosage: 2 GM 10 ML VIAL
     Route: 058
     Dates: start: 20150304, end: 20150304
  20. SERTRALINE [Concomitant]
     Active Substance: SERTRALINE HYDROCHLORIDE
  21. CALCIUM [Concomitant]
     Active Substance: CALCIUM
  22. VANCOMYCIN [Concomitant]
     Active Substance: VANCOMYCIN
  23. PRAVASTATIN [Concomitant]
     Active Substance: PRAVASTATIN\PRAVASTATIN SODIUM
  24. PRAMIPEXOLE. [Concomitant]
     Active Substance: PRAMIPEXOLE

REACTIONS (1)
  - Urticaria [Recovered/Resolved]

NARRATIVE: CASE EVENT DATE: 201503
